FAERS Safety Report 4547206-9 (Version None)
Quarter: 2005Q1

REPORT INFORMATION
  Report Type: 
  Country: None (occurrence: None)
  Receive Date: 20050105
  Receipt Date: 20041217
  Transmission Date: 20050727
  Serious: Yes (Hospitalization)
  Sender: FDA-Public Use
  Company Number: USA041286253

PATIENT
  Age: 54 Year
  Sex: Female

DRUGS (13)
  1. CYMBALTA [Suspect]
     Dosage: 60 MG DAY
     Dates: start: 20041001, end: 20041101
  2. ELAVIL [Concomitant]
  3. BENICAR [Concomitant]
  4. DARVOCET-N 100 [Concomitant]
  5. NEURONTIN (GABAPENTIN PFIZER) [Concomitant]
  6. ZETIA [Concomitant]
  7. VIOXX [Concomitant]
  8. LIPITOR [Concomitant]
  9. XANAX (ALPRAZOLAM DUM) [Concomitant]
  10. LORTAB [Concomitant]
  11. PREMARIN [Concomitant]
  12. DOXEPIN HCL [Concomitant]
  13. ANTIBIOTIC [Concomitant]

REACTIONS (15)
  - ASTHENIA [None]
  - BLOOD CREATINE PHOSPHOKINASE INCREASED [None]
  - CAROTID ARTERY DISEASE [None]
  - CONFUSIONAL STATE [None]
  - DISORIENTATION [None]
  - DIZZINESS [None]
  - DRUG TOXICITY [None]
  - DYSARTHRIA [None]
  - DYSPNOEA [None]
  - GLYCOSYLATED HAEMOGLOBIN INCREASED [None]
  - HEADACHE [None]
  - MENTAL STATUS CHANGES [None]
  - ORAL CANDIDIASIS [None]
  - PYREXIA [None]
  - TREMOR [None]
